FAERS Safety Report 10035308 (Version 1)
Quarter: 2014Q1

REPORT INFORMATION
  Report Type: Spontaneous
  Country: US (occurrence: None)
  Receive Date: 20140306
  Receipt Date: 20140306
  Transmission Date: 20141002
  Serious: Yes (Hospitalization, Other)
  Sender: FDA-Public Use
  Company Number: 163-21880-13011465

PATIENT
  Age: 79 Year
  Sex: Female
  Weight: 73.94 kg

DRUGS (5)
  1. REVLIMID (LENALIDOMIDE) (CAPSULES) [Suspect]
     Indication: PLASMA CELL MYELOMA
     Dosage: 21 IN 28 D
     Route: 048
     Dates: start: 20080115
  2. VELCADE (BORTEZOMIB) (UNKNOWN) [Concomitant]
  3. DEXAMETHASONE (DEXAMETHASONE) (UNKNOWN) [Concomitant]
  4. PRILOSEC (OMEPRAZOLE) (UNKNOWN) [Concomitant]
  5. AREDIA (PAMIDRONATE DISODIUM) (UNKNOWN) [Concomitant]

REACTIONS (1)
  - Colitis ischaemic [None]
